FAERS Safety Report 9919863 (Version 3)
Quarter: 2014Q1

REPORT INFORMATION
  Report Type: Report from Study
  Country: NL (occurrence: NL)
  Receive Date: 20140224
  Receipt Date: 20140325
  Transmission Date: 20141002
  Serious: Yes (Death, Life-Threatening, Hospitalization, Other)
  Sender: FDA-Public Use
  Company Number: NL-B.I. PHARMACEUTICALS,INC./RIDGEFIELD-2014-BI-06092NL

PATIENT
  Age: 75 Year
  Sex: Male

DRUGS (6)
  1. PRADAXA [Suspect]
     Indication: THROMBOSIS PROPHYLAXIS
     Dosage: 220 MG
     Route: 065
     Dates: start: 20120410, end: 20140112
  2. AMLODIPINE [Concomitant]
     Dosage: 10 MG
     Route: 065
     Dates: start: 20110107
  3. ENALAPRIL [Concomitant]
     Dosage: 20 MG
     Route: 065
     Dates: start: 20031127
  4. LOSARTAN/HYDROCHLOORTHIAZIDE [Concomitant]
     Dosage: DOSE PER APPLICATION:100/25 MG
     Route: 065
     Dates: start: 20120810
  5. METOPROLOL [Concomitant]
     Dosage: 200 MG
     Route: 065
     Dates: start: 20130621
  6. ATORVASTATINE [Concomitant]
     Dosage: 40 MG
     Route: 065
     Dates: start: 20040806

REACTIONS (4)
  - Circulatory collapse [Fatal]
  - Cerebral haemorrhage [Not Recovered/Not Resolved]
  - Transient ischaemic attack [Unknown]
  - Renal impairment [Unknown]
